FAERS Safety Report 5801791-5 (Version None)
Quarter: 2008Q3

REPORT INFORMATION
  Report Type: 
  Country: None (occurrence: None)
  Receive Date: 20080707
  Receipt Date: 20080624
  Transmission Date: 20090109
  Serious: Yes (Hospitalization)
  Sender: FDA-Public Use
  Company Number: CH-ELI_LILLY_AND_COMPANY-CH200806005455

PATIENT
  Age: 58 Year
  Sex: Male

DRUGS (4)
  1. PEMETREXED [Suspect]
     Indication: PLEURAL MESOTHELIOMA MALIGNANT
     Dosage: 900 MG, ON DAY 1 EVERY 21 DAYS
     Route: 042
     Dates: start: 20080425
  2. CISPLATIN [Suspect]
     Indication: PLEURAL MESOTHELIOMA MALIGNANT
     Dosage: 140 MG, ON DAY 1 OF 21 DAY CYCLE
     Route: 042
     Dates: start: 20080425
  3. DIOVAN [Concomitant]
     Dosage: 12.5 MG, DAILY (1/D)
     Route: 048
     Dates: start: 20080620
  4. ASPIRIN [Concomitant]
     Dosage: 100 MG, DAILY (1/D)
     Route: 048
     Dates: start: 20080606

REACTIONS (4)
  - BRADYARRHYTHMIA [None]
  - CEREBRAL INFARCTION [None]
  - MYOCARDIAL INFARCTION [None]
  - PRESYNCOPE [None]
